FAERS Safety Report 7316558-9 (Version None)
Quarter: 2011Q1

REPORT INFORMATION
  Report Type: 
  Country: None (occurrence: None)
  Receive Date: 20110226
  Receipt Date: 20100714
  Transmission Date: 20110831
  Serious: No
  Sender: FDA-Public Use
  Company Number: US-ALLERGAN-1009146US

PATIENT
  Age: 32 Year
  Sex: Female

DRUGS (1)
  1. BOTOX COSMETIC [Suspect]
     Indication: SKIN WRINKLING
     Dosage: 21 UNITS, SINGLE
     Route: 030
     Dates: start: 20100713, end: 20100713

REACTIONS (5)
  - HYPOAESTHESIA FACIAL [None]
  - HEADACHE [None]
  - SKIN TIGHTNESS [None]
  - DIZZINESS [None]
  - VISION BLURRED [None]
